FAERS Safety Report 11132576 (Version 1)
Quarter: 2015Q2

REPORT INFORMATION
  Report Type: Report from Study
  Country: CN (occurrence: CN)
  Receive Date: 20150522
  Receipt Date: 20150522
  Transmission Date: 20150821
  Serious: Yes (Other)
  Sender: FDA-Public Use
  Company Number: CN-BAXTER-2015BAX026881

PATIENT
  Weight: 65 kg

DRUGS (2)
  1. ADVATE [Suspect]
     Active Substance: ANTIHEMOPHILIC FACTOR, HUMAN RECOMBINANT
     Indication: OFF LABEL USE
  2. ADVATE [Suspect]
     Active Substance: ANTIHEMOPHILIC FACTOR, HUMAN RECOMBINANT
     Indication: DRUG THERAPY
     Route: 065

REACTIONS (2)
  - Haemorrhage [Unknown]
  - Haemarthrosis [Unknown]
